FAERS Safety Report 24376672 (Version 1)
Quarter: 2024Q3

REPORT INFORMATION
  Report Type: Spontaneous
  Country: DE (occurrence: DE)
  Receive Date: 20240930
  Receipt Date: 20240930
  Transmission Date: 20241017
  Serious: Yes (Death, Other)
  Sender: AMGEN
  Company Number: DE-AMGEN-DEUSP2024189010

PATIENT
  Age: 54 Year
  Sex: Male

DRUGS (3)
  1. FILGRASTIM [Suspect]
     Active Substance: FILGRASTIM
     Indication: Granulocytosis
     Dosage: UNK 5 DAYS
     Route: 065
  2. ZOLEDRONIC ACID [Concomitant]
     Active Substance: ZOLEDRONIC ACID
     Dosage: 4 MILLIGRAM 4-WEEK INTERVALS
  3. TEMOZOLOMIDE [Concomitant]
     Active Substance: TEMOZOLOMIDE
     Indication: Glioblastoma
     Dosage: UNK, 75MG/M2 FOR 6 WEEKS. FOLL. CRT, RECEIVED 6 CYCLES (150MG/M2),ON 5 DAYS EVERY 28 DAYS

REACTIONS (3)
  - Death [Fatal]
  - Myelosuppression [Unknown]
  - General physical health deterioration [Unknown]
